FAERS Safety Report 24864214 (Version 3)
Quarter: 2025Q1

REPORT INFORMATION
  Report Type: Spontaneous
  Country: US (occurrence: US)
  Receive Date: 20250120
  Receipt Date: 20250214
  Transmission Date: 20250408
  Serious: Yes (Life-Threatening, Hospitalization)
  Sender: MALLINCKRODT
  Company Number: US-MALLINCKRODT-MNK202500310

PATIENT
  Age: 17 Year
  Sex: Male

DRUGS (1)
  1. UVADEX [Suspect]
     Active Substance: METHOXSALEN
     Indication: Acute graft versus host disease in intestine
     Route: 050
     Dates: start: 20241008

REACTIONS (6)
  - Septic shock [Unknown]
  - Escherichia infection [Unknown]
  - Thrombotic microangiopathy [Unknown]
  - Hypoxia [Unknown]
  - Haemofiltration [Unknown]
  - Product use in unapproved indication [Unknown]

NARRATIVE: CASE EVENT DATE: 20241227
